FAERS Safety Report 14109720 (Version 1)
Quarter: 2017Q4

REPORT INFORMATION
  Report Type: Spontaneous
  Country: ES (occurrence: ES)
  Receive Date: 20171020
  Receipt Date: 20171020
  Transmission Date: 20180321
  Serious: Yes (Hospitalization, Other)
  Sender: FDA-Public Use
  Company Number: ES-APOTEX-2017AP019818

PATIENT
  Age: 74 Year
  Sex: Male

DRUGS (1)
  1. AMOXICILINA/ACIDO CLAVULANICO APOTEX [Suspect]
     Active Substance: AMOXICILLIN\CLAVULANIC ACID
     Indication: RESPIRATORY TRACT INFECTION
     Dosage: 875/125 MG, TID
     Route: 065
     Dates: start: 20151115, end: 20151119

REACTIONS (3)
  - Hepatitis cholestatic [Recovered/Resolved]
  - Pneumonia [Recovered/Resolved]
  - Dysphagia [Recovered/Resolved]

NARRATIVE: CASE EVENT DATE: 20151119
